FAERS Safety Report 5266408-X (Version None)
Quarter: 2007Q1

REPORT INFORMATION
  Report Type: 
  Country: None (occurrence: None)
  Receive Date: 20070315
  Receipt Date: 20070123
  Transmission Date: 20070707
  Serious: No
  Sender: FDA-Public Use
  Company Number: US-GLAXOSMITHKLINE-A0636723A

PATIENT
  Age: 55 Year
  Sex: Female

DRUGS (2)
  1. FLOVENT [Suspect]
     Indication: ASTHMA
     Dosage: 2PUFF TWICE PER DAY
     Route: 055
  2. VITAMINS [Concomitant]

REACTIONS (4)
  - ANXIETY [None]
  - DEPRESSED MOOD [None]
  - INSOMNIA [None]
  - MOOD ALTERED [None]
